FAERS Safety Report 9223464 (Version 1)
Quarter: 2013Q2

REPORT INFORMATION
  Report Type: Report from Study
  Country: US (occurrence: US)
  Receive Date: 20130410
  Receipt Date: 20130410
  Transmission Date: 20140414
  Serious: Yes (Other)
  Sender: FDA-Public Use
  Company Number: US-US-EMD SERONO, INC.-7203579

PATIENT
  Age: 63 Year
  Sex: Female
  Weight: 64 kg

DRUGS (1)
  1. REBIF [Suspect]
     Indication: MULTIPLE SCLEROSIS
     Route: 058
     Dates: start: 20110722

REACTIONS (5)
  - Scoliosis [Unknown]
  - Venous insufficiency [Unknown]
  - Incision site infection [Unknown]
  - Decubitus ulcer [Unknown]
  - Injection site erythema [Not Recovered/Not Resolved]
